FAERS Safety Report 9494029 (Version 1)
Quarter: 2013Q3

REPORT INFORMATION
  Report Type: Spontaneous
  Country: GB (occurrence: None)
  Receive Date: 20130827
  Receipt Date: 20130827
  Transmission Date: 20140515
  Serious: Yes (Other)
  Sender: FDA-Public Use
  Company Number: GER/UKI/13/0034225

PATIENT
  Sex: Male

DRUGS (1)
  1. SILDENAFIL (SILDENAFIL) [Suspect]
     Indication: PRODUCT USED FOR UNKNOWN INDICATION
     Dosage: 3 IN 1 D

REACTIONS (6)
  - Overdose [None]
  - Abdominal discomfort [None]
  - Diarrhoea [None]
  - Dyspnoea [None]
  - Exercise tolerance decreased [None]
  - Product substitution issue [None]
